FAERS Safety Report 8630994 (Version 5)
Quarter: 2012Q4

REPORT INFORMATION
  Report Type: Report from Study
  Country: US (occurrence: US)
  Receive Date: 20120622
  Receipt Date: 20121112
  Transmission Date: 20130627
  Serious: Yes (Other)
  Sender: FDA-Public Use
  Company Number: US-ABBOTT-12P-163-0940396-00

PATIENT
  Age: 40 Year
  Sex: Female
  Weight: 40.41 kg

DRUGS (12)
  1. HUMIRA 40 MG/0.8 ML PEN [Suspect]
     Indication: CROHN^S DISEASE
     Dates: start: 20120418
  2. HUMIRA 40 MG/0.8 ML PEN [Suspect]
  3. CARAFATE [Concomitant]
     Indication: GASTRITIS
     Route: 048
  4. CARAFATE [Concomitant]
     Indication: GASTROOESOPHAGEAL REFLUX DISEASE
  5. NEXIUM [Concomitant]
     Indication: GASTROOESOPHAGEAL REFLUX DISEASE
  6. IRON VITAMIN D [Concomitant]
     Indication: PRODUCT USED FOR UNKNOWN INDICATION
  7. CALCIUM [Concomitant]
     Indication: PRODUCT USED FOR UNKNOWN INDICATION
  8. ZOFRAN [Concomitant]
     Indication: NAUSEA
  9. ZOFRAN [Concomitant]
     Indication: VOMITING
  10. DEXELENT [Concomitant]
     Indication: GASTROOESOPHAGEAL REFLUX DISEASE
  11. LIDOCAINE [Concomitant]
     Indication: PRODUCT USED FOR UNKNOWN INDICATION
  12. IMURAN [Concomitant]
     Indication: CROHN^S DISEASE

REACTIONS (25)
  - Fall [Recovered/Resolved]
  - Spinal fracture [Recovered/Resolved]
  - Spinal pain [Recovered/Resolved]
  - Drug ineffective [Recovered/Resolved]
  - Aphagia [Recovered/Resolved]
  - Abdominal pain upper [Recovered/Resolved]
  - Vomiting [Recovered/Resolved]
  - Inappropriate schedule of drug administration [Recovered/Resolved]
  - Frequent bowel movements [Recovered/Resolved]
  - Pain in extremity [Unknown]
  - Crohn^s disease [Unknown]
  - Drug effect decreased [Unknown]
  - Abdominal pain [Unknown]
  - Muscle spasms [Unknown]
  - Nausea [Unknown]
  - Vomiting [Not Recovered/Not Resolved]
  - Arthralgia [Unknown]
  - Drug ineffective [Not Recovered/Not Resolved]
  - Weight decreased [Unknown]
  - Injection site pain [Recovered/Resolved]
  - Injection site pain [Recovered/Resolved]
  - Hypophagia [Not Recovered/Not Resolved]
  - Pyrexia [Not Recovered/Not Resolved]
  - Fibromyalgia [Not Recovered/Not Resolved]
  - Myalgia [Not Recovered/Not Resolved]
